FAERS Safety Report 10442284 (Version 1)
Quarter: 2014Q3

REPORT INFORMATION
  Report Type: Report from Study
  Country: US (occurrence: US)
  Receive Date: 20140909
  Receipt Date: 20140909
  Transmission Date: 20150326
  Serious: Yes (Hospitalization)
  Sender: FDA-Public Use
  Company Number: US-MYLAN-2014M1003055

PATIENT

DRUGS (5)
  1. HUMIRA [Suspect]
     Active Substance: ADALIMUMAB
     Indication: PYODERMA GANGRENOSUM
     Dosage: 80 MG, ONCE
     Route: 058
     Dates: start: 20140522, end: 20140522
  2. MAFENIDE ACETATE. [Suspect]
     Active Substance: MAFENIDE ACETATE
     Indication: PYODERMA GANGRENOSUM
  3. MAFENIDE ACETATE. [Suspect]
     Active Substance: MAFENIDE ACETATE
     Indication: WOUND INFECTION
  4. HUMIRA [Suspect]
     Active Substance: ADALIMUMAB
     Dosage: 40 MG, UNK
     Route: 058
     Dates: start: 20140605
  5. HUMIRA [Suspect]
     Active Substance: ADALIMUMAB
     Dosage: 40 MG, UNK
     Route: 058
     Dates: start: 20140731

REACTIONS (8)
  - Sepsis [Not Recovered/Not Resolved]
  - Dry skin [Not Recovered/Not Resolved]
  - Peripheral swelling [Not Recovered/Not Resolved]
  - Pyrexia [Recovered/Resolved]
  - Skin fissures [Not Recovered/Not Resolved]
  - Wound infection [Recovered/Resolved]
  - Erythema [Not Recovered/Not Resolved]
  - Drug ineffective [Not Recovered/Not Resolved]

NARRATIVE: CASE EVENT DATE: 20140707
